FAERS Safety Report 13758591 (Version 1)
Quarter: 2017Q3

REPORT INFORMATION
  Report Type: Spontaneous
  Country: HU (occurrence: US)
  Receive Date: 20170716
  Receipt Date: 20170716
  Transmission Date: 20171127
  Serious: Yes (Life-Threatening, Disabling)
  Sender: FDA-Public Use
  Company Number: None

PATIENT
  Age: 29 Year
  Sex: Female
  Weight: 57 kg

DRUGS (1)
  1. SCIPPA (ESCITALOPRAM) [Suspect]
     Active Substance: ESCITALOPRAM OXALATE
     Indication: DEPRESSED MOOD
     Dosage: ?          OTHER STRENGTH:MG;QUANTITY:0.5 TABLET(S);?
     Route: 048

REACTIONS (16)
  - Withdrawal syndrome [None]
  - Influenza like illness [None]
  - Menstruation irregular [None]
  - Hypotension [None]
  - Neurotoxicity [None]
  - Amnesia [None]
  - Decreased appetite [None]
  - Sexual dysfunction [None]
  - Muscular weakness [None]
  - Cognitive disorder [None]
  - Fatigue [None]
  - Blood glucose decreased [None]
  - Loss of libido [None]
  - Chronic fatigue syndrome [None]
  - Weight decreased [None]
  - Adrenal disorder [None]

NARRATIVE: CASE EVENT DATE: 20150317
